FAERS Safety Report 8222427-2 (Version None)
Quarter: 2012Q1

REPORT INFORMATION
  Report Type: 
  Country: None (occurrence: None)
  Receive Date: 20120320
  Receipt Date: 20120306
  Transmission Date: 20120608
  Serious: Yes (Disabling)
  Sender: FDA-Public Use
  Company Number: DE-CELGENEUS-062-21880-12013136

PATIENT
  Age: 81 Year
  Sex: Male
  Weight: 85 kg

DRUGS (15)
  1. DEXAMETHASONE [Concomitant]
     Indication: MULTIPLE MYELOMA
     Route: 048
     Dates: start: 20100101, end: 20100901
  2. POTASSIUM SODIUM HYDROGEN CITRATE [Concomitant]
     Route: 065
     Dates: start: 20100805
  3. SILAPO [Concomitant]
     Dosage: 30000 WEEK
     Route: 065
     Dates: start: 20100619, end: 20110801
  4. URALYT U [Concomitant]
     Route: 065
     Dates: start: 20100619
  5. NOVALGIN [Concomitant]
     Route: 065
     Dates: start: 20100702
  6. SILAPO [Concomitant]
     Dosage: 40000 IE
     Route: 065
     Dates: start: 20100902
  7. POTASSIUM SODIUM HYDROGEN CITRATE [Concomitant]
     Route: 065
     Dates: start: 20100902
  8. RED BLOOD CELLS, CONCENTRATED [Concomitant]
     Indication: PANCYTOPENIA
     Dosage: 2 IU (INTERNATIONAL UNIT)
     Route: 041
     Dates: start: 20090801
  9. RED BLOOD CELLS, CONCENTRATED [Concomitant]
     Indication: MYELODYSPLASTIC SYNDROME
     Dosage: 2 IU (INTERNATIONAL UNIT)
     Route: 041
     Dates: start: 20120117
  10. TILIDINE [Concomitant]
     Route: 065
     Dates: start: 20100902
  11. AMPHOTERICIN B [Concomitant]
     Route: 065
     Dates: start: 20100619
  12. COTRIM DS [Concomitant]
     Route: 065
     Dates: start: 20100708
  13. PANTOPRAZOLE [Concomitant]
     Route: 065
     Dates: start: 20100902
  14. REVLIMID [Suspect]
     Indication: MULTIPLE MYELOMA
     Route: 048
     Dates: start: 20100101, end: 20100901
  15. SILAPO [Concomitant]
     Dosage: 40000 IE
     Route: 065
     Dates: start: 20100805

REACTIONS (1)
  - MYELODYSPLASTIC SYNDROME [None]
